FAERS Safety Report 9402452 (Version 1)
Quarter: 2013Q3

REPORT INFORMATION
  Report Type: Report from Study
  Country: FR (occurrence: FR)
  Receive Date: 20130716
  Receipt Date: 20130716
  Transmission Date: 20140515
  Serious: Yes (Other)
  Sender: FDA-Public Use
  Company Number: FR-NOVOPROD-382862

PATIENT
  Age: 55 Year
  Sex: Female
  Weight: 67 kg

DRUGS (12)
  1. NORDITROPIN SIMPLEXX [Suspect]
     Indication: GROWTH HORMONE DEFICIENCY
     Dosage: 330 MG, QD
     Route: 065
     Dates: start: 20040107
  2. GLUCOPHAGE [Concomitant]
     Dosage: 3000 MG, QD
     Dates: start: 20041104
  3. LANTUS [Concomitant]
     Dosage: 36 IU, QD
     Dates: start: 20051121, end: 20060807
  4. LANTUS [Concomitant]
     Dosage: 34 IU, QD
     Dates: start: 20060808
  5. LEVOTHYROX [Concomitant]
     Dosage: 150 ?G, QD
     Dates: start: 20041118, end: 20060525
  6. LEVOTHYROX [Concomitant]
     Dosage: 175 ?G, QD
     Dates: start: 20060526
  7. LIPANTHYL [Concomitant]
     Dosage: 200 MG, QD
     Dates: start: 2005, end: 20061205
  8. LIPANTHYL [Concomitant]
     Dosage: 300 MG, QD
     Dates: start: 20061206
  9. NOVORAPID [Concomitant]
     Dosage: 44 IU, QD
     Dates: start: 20050804, end: 20060807
  10. NOVORAPID [Concomitant]
     Dosage: 74 IU, QD
     Dates: start: 20060808, end: 20061205
  11. NOVORAPID [Concomitant]
     Dosage: 66 IU, QD
     Dates: start: 20121206
  12. FUMAFER [Concomitant]
     Dosage: 1 TAB, QD
     Dates: start: 20051124

REACTIONS (1)
  - Urinary bladder polyp [Recovered/Resolved]
